FAERS Safety Report 4968879-2 (Version None)
Quarter: 2006Q2

REPORT INFORMATION
  Report Type: 
  Country: None (occurrence: None)
  Receive Date: 20060405
  Receipt Date: 20060324
  Transmission Date: 20061013
  Serious: Yes (Other)
  Sender: FDA-Public Use
  Company Number: 2006-03-1900

PATIENT
  Age: 13 Year
  Sex: Male
  Weight: 81.6475 kg

DRUGS (2)
  1. CLARITIN-D [Suspect]
     Indication: DRUG ABUSER
     Dosage: 2 - 5 TABS ORAL
     Route: 048
     Dates: start: 20060324, end: 20060324
  2. ALCOHOL ORAL SOLUTION [Suspect]
     Dosage: ORAL
     Route: 048

REACTIONS (4)
  - ALCOHOLISM [None]
  - DRUG ABUSER [None]
  - INTENTIONAL DRUG MISUSE [None]
  - VOMITING [None]
